FAERS Safety Report 12365157 (Version 2)
Quarter: 2016Q2

REPORT INFORMATION
  Report Type: Spontaneous
  Country: US (occurrence: US)
  Receive Date: 20160513
  Receipt Date: 20160627
  Transmission Date: 20160815
  Serious: Yes (Disabling, Other)
  Sender: FDA-Public Use
  Company Number: US-WEST-WARD PHARMACEUTICALS CORP.-US-H14001-16-00767

PATIENT
  Age: 69 Year
  Sex: Male

DRUGS (1)
  1. ZOLEDRONATE [Suspect]
     Active Substance: ZOLEDRONIC ACID
     Indication: PLASMA CELL MYELOMA
     Route: 042

REACTIONS (6)
  - Osteonecrosis of jaw [Unknown]
  - Exophthalmos [None]
  - Osteomyelitis [Unknown]
  - Eyelid ptosis [None]
  - Strabismus [None]
  - Blindness unilateral [Not Recovered/Not Resolved]
